FAERS Safety Report 8838030 (Version 2)
Quarter: 2012Q4

REPORT INFORMATION
  Report Type: 
  Country: US (occurrence: US)
  Receive Date: 20121012
  Receipt Date: 20121019
  Transmission Date: 20130627
  Serious: Yes (Hospitalization, Disabling, Other)
  Sender: FDA-Public Use
  Company Number: US-JNJFOC-20121004699

PATIENT
  Age: 36 Year
  Sex: Female
  Weight: 82.56 kg

DRUGS (4)
  1. RISPERDAL [Suspect]
     Indication: POST-TRAUMATIC STRESS DISORDER
     Route: 048
     Dates: start: 2005
  2. RISPERDAL [Suspect]
     Indication: POST-TRAUMATIC STRESS DISORDER
     Route: 048
  3. RISPERDAL [Suspect]
     Indication: BIPOLAR DISORDER
     Route: 048
  4. RISPERDAL [Suspect]
     Indication: BIPOLAR DISORDER
     Route: 048
     Dates: start: 2005

REACTIONS (9)
  - Depression [Recovered/Resolved]
  - Weight increased [Not Recovered/Not Resolved]
  - Amenorrhoea [Not Recovered/Not Resolved]
  - Infertility [Not Recovered/Not Resolved]
  - Mental disorder [Unknown]
  - Gallbladder disorder [Recovered/Resolved]
  - Glucose tolerance impaired [Not Recovered/Not Resolved]
  - Judgement impaired [Unknown]
  - Blood prolactin increased [Not Recovered/Not Resolved]
